FAERS Safety Report 5113378-0 (Version None)
Quarter: 2006Q3

REPORT INFORMATION
  Report Type: 
  Country: None (occurrence: None)
  Receive Date: 20060920
  Receipt Date: 20060908
  Transmission Date: 20061208
  Serious: Yes (Hospitalization)
  Sender: FDA-Public Use
  Company Number: 2005EU000577

PATIENT
  Age: 25 Year
  Sex: Male

DRUGS (2)
  1. PROTOPIC [Suspect]
     Indication: DERMATITIS ATOPIC
     Dosage: 0.03%, BID, TOPICAL
     Route: 061
     Dates: start: 20040101
  2. CLARITYNE (LORATADINE) TABLET [Concomitant]

REACTIONS (1)
  - MOLLUSCUM CONTAGIOSUM [None]
